FAERS Safety Report 10167817 (Version 2)
Quarter: 2014Q3

REPORT INFORMATION
  Report Type: Spontaneous
  Country: CH (occurrence: CH)
  Receive Date: 20140512
  Receipt Date: 20140708
  Transmission Date: 20150326
  Serious: Yes (Life-Threatening, Hospitalization, Other)
  Sender: FDA-Public Use
  Company Number: CH-TEVA-478990ISR

PATIENT
  Age: 84 Year
  Sex: Male
  Weight: 84 kg

DRUGS (6)
  1. XARELTO [Interacting]
     Active Substance: RIVAROXABAN
     Indication: ATRIAL FIBRILLATION
     Route: 048
     Dates: start: 20140203, end: 20140210
  2. ALLOPURINOL. [Concomitant]
     Active Substance: ALLOPURINOL
     Indication: GOUT
     Dosage: 300 MILLIGRAM DAILY; LONG TERM
     Route: 048
  3. NEXIUM [Concomitant]
     Active Substance: ESOMEPRAZOLE MAGNESIUM
     Indication: PROPHYLACTIC CHEMOTHERAPY
     Dosage: 20 MILLIGRAM DAILY; LONG TERM
     Route: 048
  4. XARELTO [Interacting]
     Active Substance: RIVAROXABAN
     Dosage: 20 MILLIGRAM DAILY; PROBABLY STARTED IN JUL-2013, BUT THE INFORMATION AVAILABLE WAS NOT CERTAIN
     Route: 048
     Dates: start: 2013, end: 20140129
  5. MULTAQ [Interacting]
     Active Substance: DRONEDARONE
     Indication: ATRIAL FIBRILLATION
     Dosage: 800 MILLIGRAM DAILY; LONG TERM
     Route: 048
  6. DILTIAZEM RETARD [Suspect]
     Active Substance: DILTIAZEM
     Indication: ATRIAL FIBRILLATION
     Dosage: 90 MILLIGRAM DAILY; LONG TERM
     Route: 048

REACTIONS (15)
  - Haemorrhagic anaemia [Recovered/Resolved]
  - Labelled drug-drug interaction medication error [Recovered/Resolved]
  - Peritonitis [Unknown]
  - Arterial haemorrhage [Recovered/Resolved]
  - Intestinal ischaemia [Recovered/Resolved]
  - Hypotension [Recovered/Resolved]
  - Colectomy [Recovered/Resolved]
  - Malnutrition [Unknown]
  - Septic shock [Unknown]
  - Abdominal pain [Unknown]
  - Asthenia [Unknown]
  - Diverticulum intestinal haemorrhagic [Recovered/Resolved]
  - Aspiration [Unknown]
  - Quadriplegia [Unknown]
  - Urinary tract infection [Unknown]

NARRATIVE: CASE EVENT DATE: 2013
